FAERS Safety Report 4971193-2 (Version None)
Quarter: 2006Q1

REPORT INFORMATION
  Report Type: 
  Country: None (occurrence: None)
  Receive Date: 20060216
  Receipt Date: 20040804
  Transmission Date: 20060701
  Serious: Yes (Hospitalization)
  Sender: FDA-Public Use
  Company Number: 2003IM001157

PATIENT
  Age: 52 Year
  Sex: Female
  Weight: 34.5 kg

DRUGS (13)
  1. INTERFERON GAMMA-1B [Suspect]
     Indication: OVARIAN CANCER
     Dosage: 100 UG, TIW, SUBCUTANEOUS
     Route: 058
     Dates: start: 20030910, end: 20031022
  2. ADOLONTA [Concomitant]
  3. MORPHINE [Concomitant]
  4. OMEPRAZOLE [Concomitant]
  5. CARBOPLATIN [Concomitant]
  6. PACLITAXEL [Concomitant]
  7. . [Concomitant]
  8. . [Concomitant]
  9. . [Concomitant]
  10. . [Concomitant]
  11. . [Concomitant]
  12. . [Concomitant]
  13. . [Concomitant]

REACTIONS (2)
  - ASTHENIA [None]
  - WEIGHT DECREASED [None]
